FAERS Safety Report 18113281 (Version 2)
Quarter: 2020Q3

REPORT INFORMATION
  Report Type: Spontaneous
  Country: US (occurrence: US)
  Receive Date: 20200805
  Receipt Date: 20200904
  Transmission Date: 20201103
  Serious: No
  Sender: FDA-Public Use
  Company Number: US-PFIZER INC-2020293761

PATIENT
  Age: 53 Year
  Sex: Female

DRUGS (10)
  1. ENBREL [Concomitant]
     Active Substance: ETANERCEPT
     Dosage: 14?15MG/BIWEEKLY
     Route: 065
  2. ENBREL [Concomitant]
     Active Substance: ETANERCEPT
     Dosage: 12.5 MILLIGRAM, 2 TIMES/WK
     Route: 065
  3. ENBREL [Concomitant]
     Active Substance: ETANERCEPT
     Dosage: 12.5 MILLIGRAM, 2 TIMES/WK
     Route: 065
  4. MANNITOL. [Suspect]
     Active Substance: MANNITOL
     Dosage: UNK
  5. ENBREL [Concomitant]
     Active Substance: ETANERCEPT
     Dosage: 8 MILLIGRAM, 2 TIMES/WK
     Route: 065
     Dates: start: 202006
  6. ENBREL [Concomitant]
     Active Substance: ETANERCEPT
     Dosage: 10 MILLIGRAM, 2 TIMES/WK
     Route: 065
  7. IVIGLOB EX [Suspect]
     Active Substance: HUMAN IMMUNOGLOBULIN G
     Dosage: UNK
     Route: 065
  8. ENBREL [Concomitant]
     Active Substance: ETANERCEPT
     Dosage: 12 MILLIGRAM, 2 TIMES/WK
     Route: 065
  9. GLUCERNA THERAPEUTIC NUTRITION [Concomitant]
     Dosage: UNK
     Route: 065
  10. ENBREL [Concomitant]
     Active Substance: ETANERCEPT
     Indication: ANKYLOSING SPONDYLITIS
     Dosage: 25 MILLIGRAM
     Route: 065

REACTIONS (2)
  - Reaction to excipient [Unknown]
  - Blood glucose increased [Unknown]
